FAERS Safety Report 7295449-6 (Version None)
Quarter: 2011Q1

REPORT INFORMATION
  Report Type: 
  Country: None (occurrence: None)
  Receive Date: 20110216
  Receipt Date: 20110131
  Transmission Date: 20110831
  Serious: No
  Sender: FDA-Public Use
  Company Number: US-ABBOTT-11P-163-0701589-00

PATIENT
  Sex: Male
  Weight: 83.99 kg

DRUGS (3)
  1. UNKNOWN MEDICATION [Concomitant]
     Indication: HYPERTENSION
  2. UNKNOWN MEDICATIONS [Concomitant]
     Indication: PRODUCT USED FOR UNKNOWN INDICATION
  3. SIMCOR [Suspect]
     Indication: CORONARY ARTERY OCCLUSION
     Dates: start: 20100101, end: 20110128

REACTIONS (2)
  - PRURITUS [None]
  - URTICARIA [None]
